FAERS Safety Report 25125335 (Version 1)
Quarter: 2025Q1

REPORT INFORMATION
  Report Type: Spontaneous
  Country: US (occurrence: US)
  Receive Date: 20250326
  Receipt Date: 20250326
  Transmission Date: 20250409
  Serious: Yes (Other)
  Sender: TAKEDA
  Company Number: US-TAKEDA-2025TUS029511

PATIENT
  Sex: Female
  Weight: 64 kg

DRUGS (3)
  1. VYVANSE [Suspect]
     Active Substance: LISDEXAMFETAMINE DIMESYLATE
     Indication: Attention deficit hyperactivity disorder
  2. DAYTRANA [Suspect]
     Active Substance: METHYLPHENIDATE
     Indication: Attention deficit hyperactivity disorder
  3. XELSTRYM [Suspect]
     Active Substance: DEXTROAMPHETAMINE
     Indication: Attention deficit hyperactivity disorder

REACTIONS (9)
  - Coeliac disease [Unknown]
  - Abdominal distension [Unknown]
  - Migraine [Unknown]
  - Brain fog [Unknown]
  - Inflammation [Unknown]
  - Dermatitis contact [Unknown]
  - Fatigue [Unknown]
  - Abdominal discomfort [Unknown]
  - Urticaria [Recovered/Resolved]
